FAERS Safety Report 4304674-5 (Version None)
Quarter: 2004Q1

REPORT INFORMATION
  Report Type: 
  Country: None (occurrence: None)
  Receive Date: 20040225
  Receipt Date: 20040225
  Transmission Date: 20041129
  Serious: Yes (Life-Threatening, Hospitalization)
  Sender: FDA-Public Use
  Company Number: None

PATIENT
  Age: 15 Year
  Sex: Female
  Weight: 43.9989 kg

DRUGS (1)
  1. SEPTRA DS [Suspect]
     Indication: ACNE
     Dosage: BID
     Dates: start: 20040203, end: 20040213

REACTIONS (1)
  - IDIOPATHIC THROMBOCYTOPENIC PURPURA [None]
